FAERS Safety Report 13189919 (Version 1)
Quarter: 2017Q1

REPORT INFORMATION
  Report Type: Spontaneous
  Country: US (occurrence: US)
  Receive Date: 20170206
  Receipt Date: 20170206
  Transmission Date: 20170428
  Serious: No
  Sender: FDA-Public Use
  Company Number: US-PFIZER INC-2017049867

PATIENT
  Age: 41 Year
  Sex: Female
  Weight: 102.4 kg

DRUGS (1)
  1. NEURONTIN [Suspect]
     Active Substance: GABAPENTIN
     Dosage: UNK

REACTIONS (3)
  - Pharyngeal disorder [Unknown]
  - Rash [Unknown]
  - Urticaria [Unknown]
